FAERS Safety Report 10027522 (Version 1)
Quarter: 2014Q1

REPORT INFORMATION
  Report Type: Spontaneous
  Country: US (occurrence: US)
  Receive Date: 20140321
  Receipt Date: 20140321
  Transmission Date: 20141002
  Serious: No
  Sender: FDA-Public Use
  Company Number: US-PFIZER INC-2014080984

PATIENT
  Sex: Female

DRUGS (1)
  1. XANAX [Suspect]
     Indication: INSOMNIA
     Dosage: HALF PILL AND SOMETIMES HALF TO ONE PILL UNKNOWN FREQUENCY

REACTIONS (2)
  - Intentional drug misuse [Unknown]
  - Cardiac disorder [Unknown]
